FAERS Safety Report 21263809 (Version 1)
Quarter: 2022Q3

REPORT INFORMATION
  Report Type: Spontaneous
  Country: US (occurrence: US)
  Receive Date: 20220829
  Receipt Date: 20220829
  Transmission Date: 20221027
  Serious: Yes (Other)
  Sender: FDA-Public Use
  Company Number: US-SA-SAC20220825000451

PATIENT
  Age: 60 Year
  Sex: Male

DRUGS (1)
  1. ZANTAC [Suspect]
     Active Substance: RANITIDINE HYDROCHLORIDE
     Dosage: DOSE: UNKNOWN AT THIS TIMEOTHER, QD
     Dates: start: 201803, end: 201903

REACTIONS (1)
  - Renal cancer stage I [Not Recovered/Not Resolved]

NARRATIVE: CASE EVENT DATE: 20210331
